FAERS Safety Report 18693518 (Version 1)
Quarter: 2021Q1

REPORT INFORMATION
  Report Type: Report from Study
  Country: IT (occurrence: IT)
  Receive Date: 20210104
  Receipt Date: 20210104
  Transmission Date: 20210419
  Serious: Yes (Life-Threatening)
  Sender: FDA-Public Use
  Company Number: IT-ACCORD-213242

PATIENT
  Age: 66 Year
  Sex: Female

DRUGS (6)
  1. TALOFEN [Suspect]
     Active Substance: PROMAZINE HYDROCHLORIDE
     Route: 048
     Dates: start: 20200923, end: 20200923
  2. MIRTAZAPINE. [Suspect]
     Active Substance: MIRTAZAPINE
     Route: 048
     Dates: start: 20200923, end: 20200923
  3. LITHIUM. [Suspect]
     Active Substance: LITHIUM
     Route: 048
     Dates: start: 20200923, end: 20200923
  4. TRITTICO [Suspect]
     Active Substance: TRAZODONE HYDROCHLORIDE
     Route: 048
     Dates: start: 20200923, end: 20200923
  5. SERTRALINE [Suspect]
     Active Substance: SERTRALINE HYDROCHLORIDE
     Route: 048
     Dates: start: 20200923, end: 20200923
  6. PROMAZINE [Suspect]
     Active Substance: PROMAZINE
     Route: 048
     Dates: start: 20200923, end: 20200923

REACTIONS (3)
  - Drug abuse [Unknown]
  - Coma [Unknown]
  - Intentional self-injury [Unknown]

NARRATIVE: CASE EVENT DATE: 20200923
